FAERS Safety Report 7928283-1 (Version None)
Quarter: 2011Q4

REPORT INFORMATION
  Report Type: 
  Country: None (occurrence: None)
  Receive Date: 20111118
  Receipt Date: 20111110
  Transmission Date: 20120403
  Serious: Yes (Hospitalization, Other)
  Sender: FDA-Public Use
  Company Number: US-MERCK-1106USA00375

PATIENT
  Age: 66 Year
  Sex: Female
  Weight: 77 kg

DRUGS (16)
  1. OMEGA-3 MARINE TRIGLYCERIDES [Concomitant]
     Route: 048
  2. NEXIUM [Concomitant]
     Route: 048
     Dates: start: 20050101, end: 20100101
  3. PROTONIX [Concomitant]
     Route: 048
     Dates: start: 20050101, end: 20101101
  4. ALENDRONATE SODIUM [Suspect]
     Indication: OSTEOPOROSIS
     Route: 048
     Dates: start: 20080819, end: 20081001
  5. CHONDROITIN SULFATE SODIUM AND GLUCOSAMINE SULFATE [Concomitant]
     Route: 048
  6. FOSAMAX [Suspect]
     Indication: OSTEOPOROSIS
     Route: 048
     Dates: start: 20050111, end: 20080501
  7. VITAMINS (UNSPECIFIED) [Concomitant]
     Route: 048
  8. COLESTID [Concomitant]
     Route: 048
     Dates: start: 20050101
  9. FLAXSEED [Concomitant]
     Route: 048
  10. ALENDRONATE SODIUM [Suspect]
     Route: 048
     Dates: start: 20090605, end: 20101001
  11. FOSAMAX [Suspect]
     Route: 048
  12. FOSAMAX [Suspect]
     Route: 048
  13. CALCIUM (UNSPECIFIED) [Concomitant]
     Route: 048
  14. VITAMIN D (UNSPECIFIED) [Concomitant]
     Route: 048
  15. POTASSIUM (UNSPECIFIED) [Concomitant]
     Route: 048
  16. FOSAMAX [Suspect]
     Indication: OSTEOPENIA
     Route: 048
     Dates: start: 20050111, end: 20080501

REACTIONS (37)
  - FEMUR FRACTURE [None]
  - FALL [None]
  - SQUAMOUS CELL CARCINOMA [None]
  - GASTRIC POLYPS [None]
  - MUSCLE STRAIN [None]
  - MUSCULOSKELETAL PAIN [None]
  - FOOT FRACTURE [None]
  - JOINT INJURY [None]
  - RHINITIS ALLERGIC [None]
  - REPETITIVE STRAIN INJURY [None]
  - KYPHOSCOLIOSIS [None]
  - COMPRESSION FRACTURE [None]
  - BASAL CELL CARCINOMA [None]
  - DRUG HYPERSENSITIVITY [None]
  - HYPERCHOLESTEROLAEMIA [None]
  - HERPES ZOSTER [None]
  - RADICULOPATHY [None]
  - DEVICE FAILURE [None]
  - CHEST PAIN [None]
  - HOT FLUSH [None]
  - GASTROOESOPHAGEAL REFLUX DISEASE [None]
  - SCOLIOSIS [None]
  - UTERINE DISORDER [None]
  - SKIN DISORDER [None]
  - INTERVERTEBRAL DISC DEGENERATION [None]
  - BUNION [None]
  - BLADDER PROLAPSE [None]
  - ARTHROPATHY [None]
  - OSTEOARTHRITIS [None]
  - DYSFUNCTIONAL UTERINE BLEEDING [None]
  - JOINT EFFUSION [None]
  - DIVERTICULUM [None]
  - BONE DISORDER [None]
  - BREAST CANCER [None]
  - FRACTURE NONUNION [None]
  - VAGINAL DISORDER [None]
  - OBESITY [None]
